FAERS Safety Report 5569464-4 (Version None)
Quarter: 2007Q4

REPORT INFORMATION
  Report Type: 
  Country: None (occurrence: None)
  Receive Date: 20071220
  Receipt Date: 20050927
  Transmission Date: 20080405
  Serious: Yes (Other)
  Sender: FDA-Public Use
  Company Number: IT-JNJFOC-20071200723

PATIENT
  Age: 43 Year
  Sex: Male
  Weight: 116 kg

DRUGS (4)
  1. HALOPERIDOL [Suspect]
     Indication: SCHIZOAFFECTIVE DISORDER
     Route: 048
  2. ACE INHIBITORS [Concomitant]
     Route: 065
  3. CALCIUM ANTAGONISTS [Concomitant]
     Route: 065
  4. ORAL HYPOGLYCAEMICS [Concomitant]
     Indication: DIABETES MELLITUS
     Route: 065

REACTIONS (2)
  - EXTRAPYRAMIDAL DISORDER [None]
  - WEIGHT INCREASED [None]
